FAERS Safety Report 23143556 (Version 1)
Quarter: 2023Q4

REPORT INFORMATION
  Report Type: Spontaneous
  Country: JP (occurrence: JP)
  Receive Date: 20231103
  Receipt Date: 20231103
  Transmission Date: 20240110
  Serious: Yes (Other)
  Sender: FDA-Public Use
  Company Number: JP-002147023-NVSJ2023JP015572

PATIENT

DRUGS (4)
  1. VOLTAREN [Suspect]
     Active Substance: DICLOFENAC SODIUM
     Indication: Back pain
     Dosage: UNK UNK, BID
     Route: 062
     Dates: start: 202308
  2. DIMETHAMPHETAMINE [Concomitant]
     Indication: Back pain
     Dosage: UNK
     Route: 065
     Dates: start: 202308
  3. WARM COMPRESSES [Concomitant]
     Indication: Product used for unknown indication
     Dosage: UNK
  4. DIMETHYL ISOPROPYLAZULENE [Concomitant]
     Indication: Product used for unknown indication
     Dosage: UNK

REACTIONS (2)
  - Back pain [Unknown]
  - Dermatitis contact [Unknown]
